FAERS Safety Report 22536555 (Version 1)
Quarter: 2023Q2

REPORT INFORMATION
  Report Type: Spontaneous
  Country: US (occurrence: None)
  Receive Date: 20230608
  Receipt Date: 20230608
  Transmission Date: 20230721
  Serious: Yes (Other)
  Sender: FDA-Public Use
  Company Number: 2023A129851

PATIENT
  Age: 78 Year
  Sex: Male

DRUGS (2)
  1. TAGRISSO [Suspect]
     Active Substance: OSIMERTINIB
     Route: 048
  2. TAGRISSO [Suspect]
     Active Substance: OSIMERTINIB
     Route: 048
     Dates: start: 202303

REACTIONS (3)
  - Metastases to bone [Unknown]
  - Pulmonary oedema [Unknown]
  - COVID-19 [Unknown]

NARRATIVE: CASE EVENT DATE: 20230602
